FAERS Safety Report 7451823-6 (Version None)
Quarter: 2011Q2

REPORT INFORMATION
  Report Type: 
  Country: None (occurrence: None)
  Receive Date: 20110502
  Receipt Date: 20100429
  Transmission Date: 20111010
  Serious: No
  Sender: FDA-Public Use
  Company Number: US-ASTRAZENECA-2010SE19462

PATIENT
  Age: 64 Year
  Sex: Female
  Weight: 77.1 kg

DRUGS (3)
  1. NEXIUM [Suspect]
     Indication: GASTROOESOPHAGEAL REFLUX DISEASE
     Route: 048
     Dates: start: 20100425
  2. CELEXA [Concomitant]
  3. KLONOPIN [Concomitant]

REACTIONS (6)
  - THROAT TIGHTNESS [None]
  - HEADACHE [None]
  - SOMNOLENCE [None]
  - HALLUCINATION [None]
  - NAUSEA [None]
  - DRY THROAT [None]
